FAERS Safety Report 10473436 (Version 2)
Quarter: 2014Q3

REPORT INFORMATION
  Report Type: Spontaneous
  Country: BR (occurrence: BR)
  Receive Date: 20140924
  Receipt Date: 20140924
  Transmission Date: 20150326
  Serious: Yes (Other)
  Sender: FDA-Public Use
  Company Number: BR-ASTRAZENECA-2014SE52904

PATIENT
  Age: 736 Month
  Sex: Female
  Weight: 63 kg

DRUGS (10)
  1. OMEPRAZOLE. [Suspect]
     Active Substance: OMEPRAZOLE
     Indication: ABDOMINAL DISCOMFORT
     Dosage: DAILY
     Route: 048
     Dates: start: 2012
  2. CIMZIA [Suspect]
     Active Substance: CERTOLIZUMAB PEGOL
     Indication: RHEUMATOID ARTHRITIS
     Dosage: 200 MG/ML, 1 INJECTION/EVERY TWO WEEKS
     Route: 058
     Dates: start: 201406
  3. GARDENAL [Concomitant]
     Active Substance: PHENOBARBITAL
     Indication: CONVULSION
     Route: 048
     Dates: start: 2002
  4. PREDNISONE. [Concomitant]
     Active Substance: PREDNISONE
     Indication: JOINT SWELLING
     Route: 048
     Dates: start: 201409
  5. MODURETIC 5-50 [Concomitant]
     Active Substance: AMILORIDE HYDROCHLORIDE\HYDROCHLOROTHIAZIDE
     Indication: HYPERTENSION
     Dosage: 50/5MG
     Route: 048
     Dates: start: 2002
  6. METHOTREXATE [Concomitant]
     Active Substance: METHOTREXATE
     Indication: JOINT SWELLING
     Route: 048
     Dates: start: 201409
  7. PREDNISONE. [Concomitant]
     Active Substance: PREDNISONE
     Indication: JOINT SWELLING
     Route: 048
     Dates: start: 201409, end: 201409
  8. ARTICO [Concomitant]
     Indication: PAIN IN EXTREMITY
     Dosage: 1 SACHET/IN FASTED STATE DAILY
     Route: 048
     Dates: start: 201407, end: 20140917
  9. LOSARTAN [Concomitant]
     Active Substance: LOSARTAN
     Indication: HYPERTENSION
     Route: 048
     Dates: start: 2002
  10. UNSPECIFIED SUBCUTANEOUS MEDICATION [Concomitant]
     Route: 058

REACTIONS (5)
  - Pain in extremity [Recovered/Resolved]
  - Pain in extremity [Not Recovered/Not Resolved]
  - Vein disorder [Recovered/Resolved]
  - Peripheral swelling [Not Recovered/Not Resolved]
  - Joint swelling [Recovered/Resolved]

NARRATIVE: CASE EVENT DATE: 201407
